FAERS Safety Report 11312878 (Version 1)
Quarter: 2015Q3

REPORT INFORMATION
  Report Type: Spontaneous
  Country: US (occurrence: None)
  Receive Date: 20150724
  Receipt Date: 20150724
  Transmission Date: 20151125
  Serious: Yes (Other)
  Sender: FDA-Public Use
  Company Number: None

PATIENT
  Age: 75 Year
  Sex: Male
  Weight: 97.52 kg

DRUGS (9)
  1. INSULIN [Concomitant]
     Active Substance: INSULIN NOS
  2. FISH OIL [Concomitant]
     Active Substance: FISH OIL
  3. NIFEDIPINE ER [Suspect]
     Active Substance: NIFEDIPINE
     Indication: HYPERTENSION
     Dosage: 30 PILLS
     Route: 048
     Dates: start: 20150626, end: 20150722
  4. ASPIRIN. [Concomitant]
     Active Substance: ASPIRIN
  5. ATENOLOL. [Concomitant]
     Active Substance: ATENOLOL
  6. ATORVASTATIN [Concomitant]
     Active Substance: ATORVASTATIN
  7. LOSARTAN. [Concomitant]
     Active Substance: LOSARTAN
  8. MULTIVITAMIN/MINERAL [Concomitant]
  9. NIFEDIPINE. [Concomitant]
     Active Substance: NIFEDIPINE

REACTIONS (9)
  - Nausea [None]
  - Depression [None]
  - Vertigo [None]
  - Somnolence [None]
  - Dizziness [None]
  - Oedema peripheral [None]
  - Arthralgia [None]
  - Condition aggravated [None]
  - Nervousness [None]
